FAERS Safety Report 9314178 (Version 3)
Quarter: 2014Q4

REPORT INFORMATION
  Report Type: Report from Study
  Country: GB (occurrence: GB)
  Receive Date: 20130529
  Receipt Date: 20141013
  Transmission Date: 20150529
  Serious: Yes (Hospitalization)
  Sender: FDA-Public Use
  Company Number: GB-ACCORD-015281

PATIENT
  Age: 66 Year
  Sex: Male

DRUGS (12)
  1. GEMCITABINE/GEMCITABINE HYDROCHLORIDE [Suspect]
     Active Substance: GEMCITABINE\GEMCITABINE HYDROCHLORIDE
     Indication: TRANSITIONAL CELL CARCINOMA
     Route: 054
     Dates: start: 20120926, end: 20121128
  2. METOCLOPRAMIDE. [Concomitant]
     Active Substance: METOCLOPRAMIDE
     Dosage: 30 - 60 MG
     Route: 048
     Dates: start: 20120921
  3. MORPHINE [Suspect]
     Active Substance: MORPHINE
     Indication: PRODUCT USED FOR UNKNOWN INDICATION
     Route: 048
     Dates: start: 20121001
  4. ORAMORPH SR SUSTAINED RELEASE [Suspect]
     Active Substance: MORPHINE SULFATE
     Indication: PRODUCT USED FOR UNKNOWN INDICATION
     Dosage: DAILY?AS NEEDED
     Route: 048
     Dates: start: 20120918
  5. CISPLATIN. [Suspect]
     Active Substance: CISPLATIN
     Indication: PRODUCT USED FOR UNKNOWN INDICATION
     Route: 042
     Dates: start: 20120926, end: 20121121
  6. MOVICOL [Concomitant]
     Active Substance: POLYETHYLENE GLYCOL 3350\POTASSIUM CHLORIDE\SODIUM BICARBONATE\SODIUM CHLORIDE
     Route: 048
     Dates: start: 20121010
  7. HYDROCORTISONE. [Concomitant]
     Active Substance: HYDROCORTISONE
     Dosage: 2 - 4 MG A DAY
     Route: 048
     Dates: start: 20121011
  8. DULCOLAX [Concomitant]
     Active Substance: BISACODYL OR DOCUSATE SODIUM
     Route: 048
     Dates: start: 201206
  9. SUNITINIB [Suspect]
     Active Substance: SUNITINIB
     Indication: TRANSITIONAL CELL CARCINOMA
     Dates: start: 20120927, end: 20120929
  10. PARACETAMOL [Concomitant]
     Active Substance: ACETAMINOPHEN
     Dosage: DAILY
     Route: 048
     Dates: start: 201206
  11. PREDNISOLONE. [Concomitant]
     Active Substance: PREDNISOLONE
     Dosage: DAILY
     Route: 048
     Dates: start: 201009
  12. TAMSULOSIN/TAMSULOSIN HYDROCHLORIDE [Concomitant]
     Dosage: DAILY
     Route: 048
     Dates: start: 20120401

REACTIONS (3)
  - Vomiting [Recovered/Resolved]
  - Deep vein thrombosis [Not Recovered/Not Resolved]
  - Nausea [Not Recovered/Not Resolved]

NARRATIVE: CASE EVENT DATE: 20121011
